FAERS Safety Report 5781101-2 (Version None)
Quarter: 2008Q2

REPORT INFORMATION
  Report Type: 
  Country: None (occurrence: None)
  Receive Date: 20080620
  Receipt Date: 20080611
  Transmission Date: 20081010
  Serious: Yes (Hospitalization)
  Sender: FDA-Public Use
  Company Number: FR-PFIZER INC-2008050013

PATIENT
  Sex: Male

DRUGS (5)
  1. SALAZOPYRINE [Suspect]
     Route: 048
     Dates: start: 20080311, end: 20080415
  2. DAPSONE [Concomitant]
  3. FOLIC ACID [Concomitant]
  4. HALOPERIDOL [Concomitant]
  5. CLOBETASOL PROPIONATE [Concomitant]

REACTIONS (2)
  - LEUKOPENIA [None]
  - NEUTROPENIA [None]
